FAERS Safety Report 7035267-7 (Version None)
Quarter: 2010Q4

REPORT INFORMATION
  Report Type: 
  Country: None (occurrence: None)
  Receive Date: 20101008
  Receipt Date: 20101004
  Transmission Date: 20110411
  Serious: Yes (Hospitalization)
  Sender: FDA-Public Use
  Company Number: A0884781A

PATIENT
  Age: 61 Year
  Sex: Female

DRUGS (11)
  1. LOVAZA [Suspect]
     Dosage: 1CAP TWICE PER DAY
     Route: 048
     Dates: start: 20100715, end: 20100822
  2. TRIAMTERENE AND HYDROCHLOROTHIAZIDE [Concomitant]
  3. CRESTOR [Concomitant]
  4. ASPIRIN [Concomitant]
  5. SUPHEDRINE [Concomitant]
  6. ACTIFED TAB [Concomitant]
  7. CALCIUM [Concomitant]
  8. MULTI-VITAMINS [Concomitant]
  9. GLUCOSAMINE CHONDROITIN [Concomitant]
  10. MAGNESIUM [Concomitant]
  11. RESTASIS [Concomitant]

REACTIONS (6)
  - CHEST PAIN [None]
  - COUGH [None]
  - DYSPNOEA [None]
  - LIP SWELLING [None]
  - RASH [None]
  - URTICARIA [None]
